FAERS Safety Report 6524050-4 (Version None)
Quarter: 2009Q4

REPORT INFORMATION
  Report Type: 
  Country: None (occurrence: None)
  Receive Date: 20091231
  Receipt Date: 20091221
  Transmission Date: 20100525
  Serious: Yes (Hospitalization)
  Sender: FDA-Public Use
  Company Number: JP-SANOFI-AVENTIS-A01200906053

PATIENT
  Age: 71 Year
  Sex: Female

DRUGS (4)
  1. MYSLEE [Suspect]
     Route: 048
     Dates: start: 20080314, end: 20090602
  2. WARFARIN [Concomitant]
     Indication: ANTICOAGULANT THERAPY
     Route: 048
     Dates: start: 20071129
  3. ADALAT CC [Concomitant]
     Indication: HYPERTENSION
     Route: 048
     Dates: start: 20080122
  4. TETRAMIDE [Concomitant]
     Route: 048
     Dates: start: 20080215

REACTIONS (2)
  - DRUG ABUSE [None]
  - HYPERKALAEMIA [None]
